FAERS Safety Report 10129635 (Version 1)
Quarter: 2014Q2

REPORT INFORMATION
  Report Type: Spontaneous
  Country: US (occurrence: None)
  Receive Date: 20140425
  Receipt Date: 20140425
  Transmission Date: 20141212
  Serious: No
  Sender: FDA-Public Use
  Company Number: None

PATIENT
  Age: 31 Year
  Sex: Female
  Weight: 92 kg

DRUGS (5)
  1. DEFINITY [Suspect]
     Indication: ECHOCARDIOGRAM
     Route: 042
     Dates: start: 20140424
  2. PROCARDIAXL [Concomitant]
  3. PAXIL [Concomitant]
  4. METOPROLOL [Concomitant]
  5. MVI [Concomitant]

REACTIONS (4)
  - Headache [None]
  - Musculoskeletal chest pain [None]
  - Chest pain [None]
  - Back pain [None]
